FAERS Safety Report 6438528-5 (Version None)
Quarter: 2009Q4

REPORT INFORMATION
  Report Type: 
  Country: None (occurrence: None)
  Receive Date: 20091110
  Receipt Date: 20091103
  Transmission Date: 20100525
  Serious: Yes (Other)
  Sender: FDA-Public Use
  Company Number: 2009TJ0232FU1

PATIENT
  Age: 55 Year
  Sex: Female

DRUGS (1)
  1. TWINJECT 0.3 [Suspect]
     Indication: ANAPHYLACTIC REACTION
     Dosage: 0.3 MG, AS NEEDED

REACTIONS (3)
  - LIQUID PRODUCT PHYSICAL ISSUE [None]
  - MYALGIA [None]
  - PRODUCT COLOUR ISSUE [None]
